FAERS Safety Report 17403176 (Version 1)
Quarter: 2020Q1

REPORT INFORMATION
  Report Type: Report from Study
  Country: GB (occurrence: GB)
  Receive Date: 20200211
  Receipt Date: 20200211
  Transmission Date: 20200409
  Serious: Yes (Other)
  Sender: FDA-Public Use
  Company Number: GB-MYLANLABS-2019M1097524

PATIENT
  Age: 63 Year
  Sex: Male

DRUGS (6)
  1. EPLERENONE. [Suspect]
     Active Substance: EPLERENONE
     Indication: PRODUCT USED FOR UNKNOWN INDICATION
     Dosage: 25 MILLIGRAM, QD
     Route: 065
     Dates: start: 20190823
  2. ENTRESTO [Suspect]
     Active Substance: SACUBITRIL\VALSARTAN
     Dosage: 50 MG, BID
     Route: 065
     Dates: start: 201903
  3. ENTRESTO [Suspect]
     Active Substance: SACUBITRIL\VALSARTAN
     Indication: PRODUCT USED FOR UNKNOWN INDICATION
     Dosage: SACUBITRIL 97MG,VALSARTAN 103 MG),BID
     Route: 048
     Dates: start: 20190801, end: 20190823
  4. ENTRESTO [Suspect]
     Active Substance: SACUBITRIL\VALSARTAN
     Indication: LEFT VENTRICULAR DYSFUNCTION
     Dosage: 1 DF (SACUBITRIL 49 MG/ VALSARTAN 51 MG), BID
     Route: 065
     Dates: start: 20190827
  5. ENTRESTO [Suspect]
     Active Substance: SACUBITRIL\VALSARTAN
     Indication: LEFT VENTRICULAR DYSFUNCTION
     Dosage: 50 MG, BID
     Route: 065
     Dates: start: 201903
  6. ENTRESTO [Suspect]
     Active Substance: SACUBITRIL\VALSARTAN
     Dosage: SACUBITRIL 24 MG, VALSARTAN 26 MG),BID
     Route: 048
     Dates: start: 20190409

REACTIONS (3)
  - Blood potassium increased [Recovering/Resolving]
  - Hyperkalaemia [Recovered/Resolved]
  - Blood urea increased [Unknown]

NARRATIVE: CASE EVENT DATE: 20190408
